FAERS Safety Report 5900487-9 (Version None)
Quarter: 2008Q3

REPORT INFORMATION
  Report Type: 
  Country: None (occurrence: None)
  Receive Date: 20080926
  Receipt Date: 20080922
  Transmission Date: 20090109
  Serious: Yes (Hospitalization)
  Sender: FDA-Public Use
  Company Number: CA-ROXANE LABORATORIES, INC.-2008-RO-00065RO

PATIENT
  Age: 9 Month
  Sex: Female
  Weight: 6 kg

DRUGS (12)
  1. MYCOPHENOLATE MOFETIL [Suspect]
     Indication: IMMUNOSUPPRESSANT DRUG THERAPY
  2. TACROLIMUS [Suspect]
     Indication: IMMUNOSUPPRESSANT DRUG THERAPY
  3. GANCICLOVIR [Suspect]
     Indication: PROPHYLAXIS
  4. DACLIZUMAB [Suspect]
     Indication: IMMUNOSUPPRESSANT DRUG THERAPY
  5. UNFRACTIONATED HEPARIN [Suspect]
     Indication: ANTICOAGULANT THERAPY
  6. OXYGEN [Concomitant]
     Indication: RESPIRATORY FAILURE
  7. OXYGEN [Concomitant]
  8. PIPERACILLIN AND TAZOBACTAM [Concomitant]
     Indication: PNEUMONIA BACTERIAL
  9. CIPROFLOXACIN [Concomitant]
     Indication: PNEUMONIA BACTERIAL
  10. METHYLPREDNISOLONE [Concomitant]
     Indication: RESPIRATORY FAILURE
  11. PREDNISONE [Concomitant]
     Indication: RESPIRATORY FAILURE
  12. VASOPRESSORS [Concomitant]

REACTIONS (5)
  - CULTURE URINE POSITIVE [None]
  - ESCHERICHIA INFECTION [None]
  - METAPNEUMOVIRUS INFECTION [None]
  - PNEUMONIA BACTERIAL [None]
  - RESPIRATORY FAILURE [None]
